FAERS Safety Report 12209973 (Version 1)
Quarter: 2016Q1

REPORT INFORMATION
  Report Type: Report from Study
  Country: FR (occurrence: FR)
  Receive Date: 20160325
  Receipt Date: 20160325
  Transmission Date: 20160526
  Serious: Yes (Other)
  Sender: FDA-Public Use
  Company Number: FR-UCBSA-2016010890

PATIENT

DRUGS (1)
  1. LEVETIRACETAM. [Suspect]
     Active Substance: LEVETIRACETAM
     Indication: EPILEPSY
     Dosage: UNKNOWN DOSE
     Route: 064

REACTIONS (5)
  - Speech disorder developmental [Unknown]
  - Asthma [Unknown]
  - Motor developmental delay [Unknown]
  - Foetal exposure during pregnancy [Unknown]
  - Eczema [Unknown]
